FAERS Safety Report 4630982-4 (Version None)
Quarter: 2005Q2

REPORT INFORMATION
  Report Type: 
  Country: None (occurrence: None)
  Receive Date: 20050406
  Receipt Date: 20050406
  Transmission Date: 20051028
  Serious: Yes (Death)
  Sender: FDA-Public Use
  Company Number: None

PATIENT
  Age: 69 Year
  Sex: Male
  Weight: 76.4 kg

DRUGS (8)
  1. GEMCITABINE [Suspect]
     Indication: NON-SMALL CELL LUNG CANCER
     Dosage: 1250MG/M2   D1 + 8 Q21D INTRAVENOUS
     Route: 042
     Dates: start: 20050318, end: 20050318
  2. DOCETAXEL [Suspect]
     Dosage: 40MG/M2 D1 + 8 Q21D INTRAVENOUS
     Route: 042
     Dates: start: 20050318, end: 20050318
  3. ADALAT [Concomitant]
  4. ZOCOR [Concomitant]
  5. ATENOLOL [Concomitant]
  6. LEVAQUIN [Concomitant]
  7. OXYCONTIN [Concomitant]
  8. COMPAZINE [Concomitant]

REACTIONS (5)
  - CONFUSIONAL STATE [None]
  - HYPERCALCAEMIA [None]
  - HYPOXIA [None]
  - PNEUMONIA [None]
  - PYREXIA [None]
